FAERS Safety Report 15159173 (Version 2)
Quarter: 2018Q3

REPORT INFORMATION
  Report Type: Spontaneous
  Country: IT (occurrence: IT)
  Receive Date: 20180718
  Receipt Date: 20180802
  Transmission Date: 20181010
  Serious: Yes (Hospitalization)
  Sender: FDA-Public Use
  Company Number: IT-ADIENNEP-2018AD000411

PATIENT
  Age: 11 Year
  Sex: Female

DRUGS (20)
  1. SANDIMMUN [Concomitant]
     Active Substance: CYCLOSPORINE
     Dosage: 180 MG
     Dates: start: 20171113
  2. TRIMETON [Concomitant]
     Active Substance: CHLORPHENIRAMINE MALEATE
     Dosage: 2 DF
     Route: 042
  3. ALOXI 500 MICROGRAMS SOFT CAPSULES [Concomitant]
     Dates: start: 20171111
  4. LASIX [Concomitant]
     Active Substance: FUROSEMIDE
     Dosage: 108 MG
     Route: 042
     Dates: start: 20171110
  5. UROMITEXAN [Concomitant]
     Active Substance: MESNA
     Dosage: 1100 MG
     Dates: start: 20171115
  6. ANTRA [Concomitant]
     Active Substance: OMEPRAZOLE
     Dosage: 40 MG
     Route: 042
  7. METHOTREXATE. [Suspect]
     Active Substance: METHOTREXATE
     Dosage: 15 MG CYCLICAL??????
     Route: 042
     Dates: start: 20171119, end: 20171124
  8. URSODEOXYCHOLIC ACID [Concomitant]
     Active Substance: URSODIOL
     Dosage: 600 MG
  9. THIOTEPA. [Suspect]
     Active Substance: THIOTEPA
     Indication: ALLOGENIC BONE MARROW TRANSPLANTATION THERAPY
     Dosage: 275 MG DAILY
     Route: 042
     Dates: start: 20171111, end: 20171112
  10. NYSTATIN. [Concomitant]
     Active Substance: NYSTATIN
     Dosage: 15 ML
  11. ENDOXAN BAXTER [Suspect]
     Active Substance: CYCLOPHOSPHAMIDE
     Indication: ALLOGENIC BONE MARROW TRANSPLANTATION THERAPY
     Dosage: 3300 MG DAILY
     Route: 042
     Dates: start: 20171113, end: 20171114
  12. EMEND [Concomitant]
     Active Substance: APREPITANT
     Dates: start: 20171111, end: 20171113
  13. ANTI?THYMOCYTE GLOBULIN (RABBIT) NOS [Suspect]
     Active Substance: LAPINE T-LYMPHOCYTE IMMUNE GLOBULIN
     Dosage: 137.5 MG DAILY
     Route: 042
     Dates: start: 20171113, end: 20171115
  14. RANITIDINE. [Concomitant]
     Active Substance: RANITIDINE
     Dosage: 150 MG
     Route: 042
  15. FLUCONAZOLE. [Concomitant]
     Active Substance: FLUCONAZOLE
     Dosage: 350 MG
  16. CIPROFLOXACIN. [Concomitant]
     Active Substance: CIPROFLOXACIN
     Dosage: 1000 MG
     Route: 048
     Dates: start: 20171110, end: 20171115
  17. TACHIPIRINA [Concomitant]
     Active Substance: ACETAMINOPHEN
     Dosage: 1 G
     Route: 048
  18. ACICLOVIR [Concomitant]
     Active Substance: ACYCLOVIR
     Dosage: 2400 MG
     Route: 048
     Dates: start: 20171110, end: 20171113
  19. ACICLOVIR [Concomitant]
     Active Substance: ACYCLOVIR
     Dosage: 180 MG
     Route: 042
     Dates: start: 20171114, end: 20171211
  20. URBASON [Concomitant]
     Active Substance: METHYLPREDNISOLONE
     Dosage: 40 MG
     Route: 042
     Dates: start: 20171114

REACTIONS (3)
  - Epistaxis [Recovered/Resolved]
  - Ejection fraction decreased [Recovered/Resolved]
  - Mucosal inflammation [Recovered/Resolved]

NARRATIVE: CASE EVENT DATE: 20171121
